FAERS Safety Report 16960829 (Version 1)
Quarter: 2019Q4

REPORT INFORMATION
  Report Type: Spontaneous
  Country: FR (occurrence: FR)
  Receive Date: 20191025
  Receipt Date: 20191025
  Transmission Date: 20200122
  Serious: Yes (Hospitalization)
  Sender: FDA-Public Use
  Company Number: FR-ACCORD-159019

PATIENT
  Age: 72 Year
  Sex: Male
  Weight: 82 kg

DRUGS (2)
  1. CARBOPLATIN ACCORD [Suspect]
     Active Substance: CARBOPLATIN
     Indication: PROSTATE CANCER
     Dosage: 7 MEDICATIONS
     Route: 041
     Dates: start: 20190228, end: 20190411
  2. PACLITAXEL KABI [Suspect]
     Active Substance: PACLITAXEL
     Indication: PROSTATE CANCER
     Dosage: 7 MEDICATIONS
     Route: 041
     Dates: start: 20190228, end: 20190411

REACTIONS (3)
  - Dyspnoea [Not Recovered/Not Resolved]
  - Interstitial lung disease [Not Recovered/Not Resolved]
  - Off label use [Unknown]

NARRATIVE: CASE EVENT DATE: 20190501
